FAERS Safety Report 15108330 (Version 4)
Quarter: 2020Q3

REPORT INFORMATION
  Report Type: Other
  Country: US (occurrence: US)
  Receive Date: 20180705
  Receipt Date: 20200929
  Transmission Date: 20201102
  Serious: Yes (Hospitalization, Other)
  Sender: FDA-Public Use
  Company Number: US-ROCHE-2146848

PATIENT
  Age: 28 Year
  Sex: Female
  Weight: 53.12 kg

DRUGS (7)
  1. BACLOFEN. [Concomitant]
     Active Substance: BACLOFEN
     Dosage: 3 TIMES EVERY DAY AS NEEDED ;ONGOING: YES
  2. IBUPROFEN. [Concomitant]
     Active Substance: IBUPROFEN
     Dosage: 600 MG 2 TO 3 TIMES A DAY AS NEEDED ;ONGOING: YES
  3. GABAPENTIN. [Concomitant]
     Active Substance: GABAPENTIN
     Dosage: ONGOING: YES
  4. ATIVAN [Concomitant]
     Active Substance: LORAZEPAM
     Dosage: 3 TIMES EVERY DAY AS NEEDED ;ONGOING: YES
  5. OCREVUS [Suspect]
     Active Substance: OCRELIZUMAB
     Indication: MULTIPLE SCLEROSIS RELAPSE
     Dosage: 300MG ONCE AND SECOND ON 2 WEEKS LATER
     Route: 042
     Dates: start: 20170616
  6. TRAZODONE [Concomitant]
     Active Substance: TRAZODONE HYDROCHLORIDE
     Dosage: ONGOING: YES
  7. PERCOCET [Concomitant]
     Active Substance: ACETAMINOPHEN\OXYCODONE HYDROCHLORIDE
     Dosage: 4 TIMES EVERY 1 DAY AS NEEDED ;ONGOING: YES

REACTIONS (8)
  - Drug hypersensitivity [Unknown]
  - Multiple sclerosis relapse [Unknown]
  - Neoplasm malignant [Unknown]
  - Nausea [Unknown]
  - Post procedural haemorrhage [Unknown]
  - Nephrolithiasis [Unknown]
  - Infection [Unknown]
  - Vomiting [Unknown]

NARRATIVE: CASE EVENT DATE: 201803
